FAERS Safety Report 14938381 (Version 2)
Quarter: 2018Q3

REPORT INFORMATION
  Report Type: Report from Study
  Country: US (occurrence: US)
  Receive Date: 20180525
  Receipt Date: 20180709
  Transmission Date: 20181010
  Serious: Yes (Other)
  Sender: FDA-Public Use
  Company Number: US-JNJFOC-20180507234

PATIENT
  Age: 38 Year
  Sex: Male
  Weight: 113.4 kg

DRUGS (2)
  1. TREMFYA [Concomitant]
     Active Substance: GUSELKUMAB
     Route: 065
     Dates: start: 201711
  2. USTEKINUMAB [Suspect]
     Active Substance: USTEKINUMAB
     Indication: PSORIASIS
     Route: 058
     Dates: start: 200912, end: 201709

REACTIONS (1)
  - Pleomorphic adenoma [Recovered/Resolved]

NARRATIVE: CASE EVENT DATE: 20180406
